FAERS Safety Report 5245883-0 (Version None)
Quarter: 2007Q1

REPORT INFORMATION
  Report Type: 
  Country: None (occurrence: None)
  Receive Date: 20070216
  Receipt Date: 20070207
  Transmission Date: 20070707
  Serious: Yes (Hospitalization)
  Sender: FDA-Public Use
  Company Number: SIM20070001

PATIENT
  Age: 68 Year
  Sex: Female

DRUGS (2)
  1. SIMVASTATIN [Suspect]
     Indication: BLOOD CHOLESTEROL INCREASED
     Dosage: 20 MG DAILY PO
     Route: 048
  2. ASPIRIN [Concomitant]

REACTIONS (4)
  - FACIAL PALSY [None]
  - MYOCARDIAL INFARCTION [None]
  - PARALYSIS [None]
  - VISUAL DISTURBANCE [None]
